FAERS Safety Report 13578563 (Version 5)
Quarter: 2017Q3

REPORT INFORMATION
  Report Type: Report from Study
  Country: CA (occurrence: CA)
  Receive Date: 20170524
  Receipt Date: 20170718
  Transmission Date: 20171127
  Serious: Yes (Hospitalization)
  Sender: FDA-Public Use
  Company Number: CA-HLSUS-2017-CA-000502

PATIENT
  Age: 68 Year
  Sex: Female

DRUGS (5)
  1. SERTRALINE [Concomitant]
     Active Substance: SERTRALINE HYDROCHLORIDE
     Indication: PSYCHOTIC DISORDER
     Dosage: 25MG TWICE A DAY
     Route: 048
  2. MELATONIN [Concomitant]
     Active Substance: MELATONIN
     Indication: PSYCHOTIC DISORDER
     Dosage: 10MG
     Route: 048
  3. TRIAZOLAM. [Concomitant]
     Active Substance: TRIAZOLAM
     Indication: PSYCHOTIC DISORDER
     Dosage: 0.25MG AS NEEDED
     Route: 048
  4. CLOZARIL [Suspect]
     Active Substance: CLOZAPINE
     Indication: DEMENTIA ALZHEIMER^S TYPE
     Dosage: 12.5 MG
     Route: 048
     Dates: start: 20170511, end: 20170528
  5. REMERON [Concomitant]
     Active Substance: MIRTAZAPINE
     Indication: PSYCHOTIC DISORDER
     Dosage: 15 MG
     Route: 048

REACTIONS (6)
  - Pneumonia aspiration [Unknown]
  - Rash generalised [Recovered/Resolved]
  - Adverse drug reaction [Unknown]
  - Epilepsy [Unknown]
  - Tachyarrhythmia [Unknown]
  - Pyrexia [Not Recovered/Not Resolved]

NARRATIVE: CASE EVENT DATE: 20170512
